FAERS Safety Report 7304517-1 (Version None)
Quarter: 2011Q1

REPORT INFORMATION
  Report Type: 
  Country: None (occurrence: None)
  Receive Date: 20110221
  Receipt Date: 20110214
  Transmission Date: 20110831
  Serious: Yes (Other)
  Sender: FDA-Public Use
  Company Number: US-AMGEN-USASP2011007470

PATIENT
  Sex: Male

DRUGS (2)
  1. DANAZOL [Concomitant]
     Indication: IDIOPATHIC THROMBOCYTOPENIC PURPURA
     Dosage: UNK
     Dates: start: 20090101
  2. NPLATE [Suspect]
     Indication: IDIOPATHIC THROMBOCYTOPENIC PURPURA
     Dosage: 5 A?G/KG, UNK
     Dates: start: 20090908, end: 20100902

REACTIONS (2)
  - MYELOFIBROSIS [None]
  - BIOPSY BONE MARROW ABNORMAL [None]
